FAERS Safety Report 20554168 (Version 3)
Quarter: 2022Q2

REPORT INFORMATION
  Report Type: Report from Study
  Country: CA (occurrence: None)
  Receive Date: 20220304
  Receipt Date: 20220406
  Transmission Date: 20220721
  Serious: Yes (Other)
  Sender: FDA-Public Use
  Company Number: 2022A086649

PATIENT
  Sex: Female

DRUGS (4)
  1. IMFINZI [Suspect]
     Active Substance: DURVALUMAB
     Indication: Small cell lung cancer extensive stage
     Route: 042
     Dates: start: 20211018, end: 20220111
  2. ROSUVASTATIN [Concomitant]
     Active Substance: ROSUVASTATIN
  3. POTASSIUM CHLORIDE [Concomitant]
     Active Substance: POTASSIUM CHLORIDE
  4. MORPHINE [Concomitant]
     Active Substance: MORPHINE

REACTIONS (4)
  - Immune-mediated enterocolitis [Unknown]
  - Diarrhoea [Unknown]
  - Inflammation [Unknown]
  - Gastrointestinal wall thickening [Unknown]
